FAERS Safety Report 5393588-8 (Version None)
Quarter: 2007Q3

REPORT INFORMATION
  Report Type: 
  Country: None (occurrence: None)
  Receive Date: 20070723
  Receipt Date: 20060914
  Transmission Date: 20080115
  Serious: No
  Sender: FDA-Public Use
  Company Number: A0620202A

PATIENT
  Sex: Female

DRUGS (4)
  1. AVANDIA [Suspect]
     Route: 048
  2. METFORMIN HCL [Suspect]
     Dosage: 500MG PER DAY
  3. LIPITOR [Concomitant]
  4. AVALIDE [Concomitant]

REACTIONS (1)
  - DRUG INEFFECTIVE [None]
